FAERS Safety Report 7720523-7 (Version None)
Quarter: 2011Q3

REPORT INFORMATION
  Report Type: 
  Country: None (occurrence: None)
  Receive Date: 20110831
  Receipt Date: 20110831
  Transmission Date: 20111222
  Serious: Yes (Hospitalization)
  Sender: FDA-Public Use
  Company Number: None

PATIENT
  Age: 25 Year
  Sex: Female
  Weight: 56.245 kg

DRUGS (1)
  1. MIRENA [Suspect]

REACTIONS (6)
  - TREMOR [None]
  - MENORRHAGIA [None]
  - ABDOMINAL PAIN [None]
  - PALPITATIONS [None]
  - OVARIAN CYST [None]
  - SCAR [None]
